FAERS Safety Report 8775297 (Version 4)
Quarter: 2013Q1

REPORT INFORMATION
  Report Type: Spontaneous
  Country: US (occurrence: US)
  Receive Date: 20120910
  Receipt Date: 20130219
  Transmission Date: 20140127
  Serious: Yes (Other)
  Sender: FDA-Public Use
  Company Number: US-PFIZER INC-2012219250

PATIENT
  Age: 48 Year
  Sex: Male
  Weight: 86.17 kg

DRUGS (7)
  1. LYRICA [Suspect]
     Dosage: 100 MG, 3X/DAY
     Dates: start: 2007
  2. LYRICA [Suspect]
     Dosage: UNK
     Dates: start: 20090115
  3. LYRICA [Suspect]
     Dosage: 200 MG, 3X/DAY
     Dates: end: 201210
  4. LYRICA [Suspect]
     Dosage: 200 MG, 2X/DAY
     Dates: start: 201210, end: 201210
  5. LYRICA [Suspect]
     Dosage: UNK
     Dates: start: 201210, end: 20130213
  6. CYMBALTA [Concomitant]
     Dosage: 60 MG, 1X/DAY
  7. NORCO [Concomitant]
     Dosage: UNK, 2X/DAY

REACTIONS (5)
  - Neoplasm malignant [Unknown]
  - Nerve injury [Unknown]
  - Vision blurred [Unknown]
  - Musculoskeletal disorder [Unknown]
  - Drug dose omission [Unknown]
